FAERS Safety Report 6682733-X (Version None)
Quarter: 2010Q2

REPORT INFORMATION
  Report Type: 
  Country: None (occurrence: None)
  Receive Date: 20100415
  Receipt Date: 20100408
  Transmission Date: 20101027
  Serious: Yes (Death, Life-Threatening, Hospitalization)
  Sender: FDA-Public Use
  Company Number: FR-ROCHE-681184

PATIENT
  Sex: Female
  Weight: 60 kg

DRUGS (13)
  1. AVASTIN [Suspect]
     Indication: COLON CANCER
     Route: 042
     Dates: start: 20090301, end: 20090903
  2. FOLINIC ACID [Concomitant]
     Indication: COLON CANCER
     Dosage: RECEIVED IN ADJUVANT
     Dates: start: 20090211, end: 20090729
  3. FOLINIC ACID [Concomitant]
     Dosage: ROUTE: INTRAVENOUS
     Dates: start: 20090903, end: 20090903
  4. FLUOROURACIL [Concomitant]
     Indication: COLON CANCER
     Dosage: RECEIVED IN ADJUVANT
     Dates: start: 20090211, end: 20090729
  5. FLUOROURACIL [Concomitant]
     Dosage: ROUTE: INTRAVENOUS
     Dates: start: 20090903, end: 20090903
  6. CAMPTOSAR [Concomitant]
     Indication: COLON CANCER
     Dosage: RECEIVED IN ADJUVANT
     Dates: start: 20090211, end: 20090729
  7. CAMPTOSAR [Concomitant]
     Dosage: ROUTE: INTRAVENOUS
     Dates: start: 20090903, end: 20090903
  8. NEXIUM [Concomitant]
     Dosage: INEXIUM 40
     Route: 048
  9. PARACETAMOL [Concomitant]
  10. ATARAX [Concomitant]
     Dosage: ATARAX 25
  11. NEURONTIN [Concomitant]
  12. OXYCONTIN [Concomitant]
  13. OXYCODONE HCL [Concomitant]

REACTIONS (3)
  - GENERAL PHYSICAL HEALTH DETERIORATION [None]
  - SEPTIC SHOCK [None]
  - TUMOUR PERFORATION [None]
